FAERS Safety Report 6602904-8 (Version None)
Quarter: 2010Q1

REPORT INFORMATION
  Report Type: 
  Country: None (occurrence: None)
  Receive Date: 20100218
  Receipt Date: 20100118
  Transmission Date: 20100710
  Serious: Yes (Other)
  Sender: FDA-Public Use
  Company Number: JPI-P-009452

PATIENT
  Age: 22 Year
  Sex: Male

DRUGS (1)
  1. LUVOX [Suspect]
     Indication: DEPRESSION
     Dosage: ORAL
     Route: 048
     Dates: start: 20090101, end: 20091130

REACTIONS (3)
  - CHEST PAIN [None]
  - CHOKING [None]
  - OESOPHAGEAL ULCER [None]
